FAERS Safety Report 21584413 (Version 2)
Quarter: 2022Q4

REPORT INFORMATION
  Report Type: Spontaneous
  Country: JP (occurrence: JP)
  Receive Date: 20221111
  Receipt Date: 20221214
  Transmission Date: 20230112
  Serious: Yes (Hospitalization, Other)
  Sender: FDA-Public Use
  Company Number: JP-BAXTER-2022BAX024005

PATIENT
  Age: 53 Year
  Sex: Female

DRUGS (9)
  1. CYCLOPHOSPHAMIDE [Suspect]
     Active Substance: CYCLOPHOSPHAMIDE
     Indication: Diffuse large B-cell lymphoma stage II
     Dosage: 6 CYCLES OF R-CHOP THERAPY
     Route: 065
  2. CYCLOPHOSPHAMIDE [Suspect]
     Active Substance: CYCLOPHOSPHAMIDE
     Indication: Bone marrow conditioning regimen
     Dosage: 50 MG/KG/DAY FOR 2 DAYS, MCVC THERAPY
     Route: 065
  3. DOXORUBICIN HYDROCHLORIDE [Concomitant]
     Active Substance: DOXORUBICIN HYDROCHLORIDE
     Indication: Diffuse large B-cell lymphoma stage II
     Dosage: 6 CYCLES OF R-CHOP THERAPY
     Route: 065
  4. VINCRISTINE SULFATE [Concomitant]
     Active Substance: VINCRISTINE SULFATE
     Indication: Diffuse large B-cell lymphoma stage II
     Dosage: 6 CYCLES OF R-CHOP THERAPY
     Route: 065
  5. PREDNISOLONE [Concomitant]
     Active Substance: PREDNISOLONE
     Indication: Diffuse large B-cell lymphoma stage II
     Dosage: 6 CYCLES OF R-CHOP THERAPY
     Route: 065
  6. RITUXIMAB [Concomitant]
     Active Substance: RITUXIMAB
     Indication: Diffuse large B-cell lymphoma stage II
     Dosage: GENETICAL RECOMBINANT, 6 CYCLES OF R-CHOP THERAPY
     Route: 065
  7. RANIMUSTINE [Concomitant]
     Active Substance: RANIMUSTINE
     Indication: Bone marrow conditioning regimen
     Dosage: 200 MG/M2/DAY FOR 2 DAYS, MCVC THERAPY
     Route: 065
  8. CARBOPLATIN [Concomitant]
     Active Substance: CARBOPLATIN
     Indication: Bone marrow conditioning regimen
     Dosage: 300 MG/M2/DAY FOR 4 DAYS, MCVC THERAPY
     Route: 065
  9. ETOPOSIDE [Concomitant]
     Active Substance: ETOPOSIDE
     Indication: Bone marrow conditioning regimen
     Dosage: 500 MG/M2/DAY FOR 3 DAYS, MCVC THERAPY
     Route: 065

REACTIONS (12)
  - Low cardiac output syndrome [Recovering/Resolving]
  - Ejection fraction decreased [Recovering/Resolving]
  - Cardiac failure [Recovering/Resolving]
  - Dyspnoea [Recovering/Resolving]
  - Sinus tachycardia [Recovering/Resolving]
  - Cardiomegaly [Recovering/Resolving]
  - Pulmonary congestion [Recovering/Resolving]
  - Troponin I increased [Recovering/Resolving]
  - Brain natriuretic peptide increased [Recovering/Resolving]
  - Pericardial effusion [Recovering/Resolving]
  - Left ventricular dysfunction [Recovering/Resolving]
  - Myocardial oedema [Recovering/Resolving]
